FAERS Safety Report 7503254-8 (Version None)
Quarter: 2011Q2

REPORT INFORMATION
  Report Type: 
  Country: None (occurrence: None)
  Receive Date: 20110525
  Receipt Date: 20101203
  Transmission Date: 20111010
  Serious: No
  Sender: FDA-Public Use
  Company Number: A0897654A

PATIENT
  Age: 52 Year
  Sex: Female

DRUGS (2)
  1. BACTROBAN [Suspect]
     Indication: MOLE EXCISION
     Dosage: 1APP THREE TIMES PER DAY
     Route: 061
     Dates: start: 20101127, end: 20101203
  2. NO CONCURRENT MEDICATION [Concomitant]

REACTIONS (1)
  - VAGINAL MUCOSAL BLISTERING [None]
